FAERS Safety Report 6720410-7 (Version None)
Quarter: 2010Q2

REPORT INFORMATION
  Report Type: 
  Country: None (occurrence: None)
  Receive Date: 20100506
  Receipt Date: 20100424
  Transmission Date: 20101027
  Serious: Yes (Other)
  Sender: FDA-Public Use
  Company Number: 2010AP000870

PATIENT
  Age: 68 Year
  Sex: Female

DRUGS (1)
  1. ALENDRONATE SODIUM [Suspect]
     Indication: OSTEOPOROSIS
     Dosage: 10 MG;QD; 70 MG;QW; 70 MG;QW

REACTIONS (2)
  - FRACTURED ISCHIUM [None]
  - PUBIS FRACTURE [None]
